FAERS Safety Report 26057623 (Version 1)
Quarter: 2025Q4

REPORT INFORMATION
  Report Type: Spontaneous
  Country: US (occurrence: None)
  Receive Date: 20251118
  Receipt Date: 20251118
  Transmission Date: 20260117
  Serious: No
  Sender: UCB
  Company Number: US-UCBSA-2025029016

PATIENT

DRUGS (1)
  1. VIMPAT [Suspect]
     Active Substance: LACOSAMIDE
     Indication: Product used for unknown indication
     Dosage: UNK

REACTIONS (6)
  - Stomatitis [Unknown]
  - Mouth ulceration [Unknown]
  - Dysarthria [Unknown]
  - Dyspnoea [Unknown]
  - Pallor [Unknown]
  - Pruritus [Unknown]
